FAERS Safety Report 6393646-5 (Version None)
Quarter: 2009Q4

REPORT INFORMATION
  Report Type: 
  Country: None (occurrence: None)
  Receive Date: 20091008
  Receipt Date: 20091002
  Transmission Date: 20100525
  Serious: Yes (Hospitalization)
  Sender: FDA-Public Use
  Company Number: US-JNJFOC-20080606890

PATIENT
  Sex: Female
  Weight: 70.31 kg

DRUGS (6)
  1. DURAGESIC-100 [Suspect]
     Dosage: 1X 100UG/HR PATCH PLUS 1X 50UG/HR PATCH
     Route: 062
  2. DURAGESIC-100 [Suspect]
     Route: 062
  3. DURAGESIC-100 [Suspect]
     Indication: PAIN
     Dosage: 1X 100UG/HR PATCH PLUS 1X 50UG/HR PATCH
     Route: 062
  4. FENTANYL TRANSDERMAL SYSTEM [Suspect]
     Indication: ARTHRITIS
     Dosage: 50 UG/HR PLUS 100 UG/HR
     Route: 062
  5. LIPITOR [Concomitant]
     Indication: BLOOD CHOLESTEROL INCREASED
     Route: 048
  6. ALTACE [Concomitant]
     Indication: HYPERTENSION
     Route: 048

REACTIONS (6)
  - CHEST PAIN [None]
  - DRUG INEFFECTIVE [None]
  - FATIGUE [None]
  - GASTROOESOPHAGEAL REFLUX DISEASE [None]
  - HEART RATE DECREASED [None]
  - NAUSEA [None]
